FAERS Safety Report 5141009-2 (Version None)
Quarter: 2006Q4

REPORT INFORMATION
  Report Type: 
  Country: None (occurrence: None)
  Receive Date: 20061026
  Receipt Date: 20061018
  Transmission Date: 20070319
  Serious: Yes (Hospitalization)
  Sender: FDA-Public Use
  Company Number: HQWYE262418OCT06

PATIENT
  Age: 56 Year
  Sex: Female

DRUGS (4)
  1. CORDARONE [Suspect]
     Indication: ATRIAL FLUTTER
     Dosage: SEE IMAGE
     Route: 048
     Dates: start: 20060701
  2. CORDARONE [Suspect]
     Indication: MYOCARDIAL ISCHAEMIA
     Dosage: SEE IMAGE
     Route: 048
     Dates: start: 20060701
  3. METOPROLOL TARTRATE [Concomitant]
  4. UNSPECIFIED DIURETIC [Concomitant]

REACTIONS (3)
  - ATRIAL FLUTTER [None]
  - DRUG INEFFECTIVE [None]
  - DYSPNOEA [None]
